FAERS Safety Report 11969655 (Version 1)
Quarter: 2016Q1

REPORT INFORMATION
  Report Type: Spontaneous
  Country: US (occurrence: None)
  Receive Date: 20160126
  Receipt Date: 20160126
  Transmission Date: 20160526
  Serious: Yes (Hospitalization)
  Sender: FDA-Public Use
  Company Number: None

PATIENT
  Sex: Female
  Weight: 83.64 kg

DRUGS (1)
  1. HARVONI [Suspect]
     Active Substance: LEDIPASVIR\SOFOSBUVIR
     Indication: CHRONIC HEPATITIS C
     Dosage: 90MG/400MG ORAL QD
     Route: 048
     Dates: start: 20150308, end: 20150413

REACTIONS (1)
  - Acute disseminated encephalomyelitis [None]

NARRATIVE: CASE EVENT DATE: 20150414
